FAERS Safety Report 25311854 (Version 1)
Quarter: 2025Q2

REPORT INFORMATION
  Report Type: Spontaneous
  Country: RU (occurrence: RU)
  Receive Date: 20250514
  Receipt Date: 20250514
  Transmission Date: 20250717
  Serious: Yes (Other)
  Sender: BAYER HEALTHCARE PHARMACEUTICALS INC.
  Company Number: RU-BAYER-2025A062730

PATIENT
  Sex: Female

DRUGS (1)
  1. DIENOGEST\ESTRADIOL VALERATE [Suspect]
     Active Substance: DIENOGEST\ESTRADIOL VALERATE
     Indication: Abnormal uterine bleeding
     Route: 048

REACTIONS (4)
  - Psychotic disorder [None]
  - Intermenstrual bleeding [None]
  - Blood pressure abnormal [None]
  - Gastrointestinal disorder [None]
